FAERS Safety Report 13252562 (Version 1)
Quarter: 2017Q1

REPORT INFORMATION
  Report Type: Spontaneous
  Country: US (occurrence: US)
  Receive Date: 20170220
  Receipt Date: 20170220
  Transmission Date: 20170428
  Serious: No
  Sender: FDA-Public Use
  Company Number: US-ELI_LILLY_AND_COMPANY-US201702006719

PATIENT
  Sex: Female

DRUGS (3)
  1. TRULICITY [Suspect]
     Active Substance: DULAGLUTIDE
     Indication: TYPE 2 DIABETES MELLITUS
     Dosage: 0.75 MG, WEEKLY (1/W)
     Route: 065
     Dates: start: 20170202
  2. GLIPIZIDE. [Concomitant]
     Active Substance: GLIPIZIDE
  3. TRULICITY [Suspect]
     Active Substance: DULAGLUTIDE
     Dosage: 1.5 MG, BID
     Route: 065
     Dates: start: 20170209

REACTIONS (4)
  - Pruritus [Recovered/Resolved]
  - Diarrhoea [Unknown]
  - Blood glucose increased [Unknown]
  - Pneumonia [Recovering/Resolving]
